FAERS Safety Report 7074663-9 (Version None)
Quarter: 2010Q4

REPORT INFORMATION
  Report Type: 
  Country: None (occurrence: None)
  Receive Date: 20101029
  Receipt Date: 20101027
  Transmission Date: 20110411
  Serious: Yes (Hospitalization, Other)
  Sender: FDA-Public Use
  Company Number: B0678215A

PATIENT
  Sex: Female
  Weight: 82 kg

DRUGS (2)
  1. TYVERB [Suspect]
     Dosage: 1250MG PER DAY
     Route: 048
     Dates: start: 20100907
  2. CAPECITABINE [Concomitant]
     Route: 048
     Dates: start: 20100907

REACTIONS (2)
  - ACCIDENTAL OVERDOSE [None]
  - VENTRICULAR TACHYCARDIA [None]
